FAERS Safety Report 15913456 (Version 1)
Quarter: 2019Q1

REPORT INFORMATION
  Report Type: Other
  Country: IT (occurrence: IT)
  Receive Date: 20190204
  Receipt Date: 20190204
  Transmission Date: 20190417
  Serious: Yes (Other)
  Sender: FDA-Public Use
  Company Number: IT-GE HEALTHCARE LIFE SCIENCES-2019CSU000617

PATIENT

DRUGS (2)
  1. ADREVIEW [Suspect]
     Active Substance: IOBENGUANE I-123
     Indication: DIAGNOSTIC PROCEDURE
     Dosage: UNK UNK, SINGLE
     Route: 042
  2. ADREVIEW [Suspect]
     Active Substance: IOBENGUANE I-123
     Indication: PRODUCT USED FOR UNKNOWN INDICATION

REACTIONS (1)
  - Syncope [Recovered/Resolved]

NARRATIVE: CASE EVENT DATE: 20160303
